FAERS Safety Report 5232404-1 (Version None)
Quarter: 2007Q1

REPORT INFORMATION
  Report Type: 
  Country: None (occurrence: None)
  Receive Date: 20070205
  Receipt Date: 20070126
  Transmission Date: 20070707
  Serious: Yes (Life-Threatening, Other)
  Sender: FDA-Public Use
  Company Number: 2007-00202

PATIENT
  Age: 78 Year
  Sex: Male

DRUGS (14)
  1. VELCADE [Suspect]
     Indication: MULTIPLE MYELOMA
     Dosage: 1.88 MG,
     Dates: start: 20070105, end: 20070112
  2. DEXAMETHASONE [Concomitant]
  3. FAMOTIDINE [Concomitant]
  4. FLIVAS (NAFTOPIDIL) [Concomitant]
  5. CLINORIL [Concomitant]
  6. ALFAROL (ALFACALCIDOL) [Concomitant]
  7. METHYCOBAL (MECOBALAMIN) [Concomitant]
  8. FOLIC ACID [Concomitant]
  9. CALCIUM LACTATE (CALCIUM LACTATE) [Concomitant]
  10. ALENDRONATE SODIUM [Concomitant]
  11. KAMAG G (MAGNESIUM OXIDE) [Concomitant]
  12. NORVASC [Concomitant]
  13. BAKTAR (SULFAMETHOXAZOLE, TRIMETHOPRIM) [Concomitant]
  14. NEUPOGEN [Concomitant]

REACTIONS (17)
  - ANAEMIA [None]
  - ANOREXIA [None]
  - ASPERGILLOSIS [None]
  - BLOOD ALBUMIN DECREASED [None]
  - BLOOD BILIRUBIN INCREASED [None]
  - BLOOD UREA INCREASED [None]
  - DEHYDRATION [None]
  - ECCHYMOSIS [None]
  - ENTEROCOCCAL INFECTION [None]
  - HYPOCALCAEMIA [None]
  - HYPOKALAEMIA [None]
  - LEUKOPENIA [None]
  - MALAISE [None]
  - NEUROPATHY PERIPHERAL [None]
  - PNEUMONIA BACTERIAL [None]
  - PROTEIN TOTAL DECREASED [None]
  - THROMBOCYTOPENIA [None]
